FAERS Safety Report 8860575 (Version 5)
Quarter: 2013Q2

REPORT INFORMATION
  Report Type: Spontaneous
  Country: JP (occurrence: JP)
  Receive Date: 20121025
  Receipt Date: 20130621
  Transmission Date: 20140414
  Serious: Yes (Hospitalization)
  Sender: FDA-Public Use
  Company Number: JP-ABBOTT-12P-087-0997700-00

PATIENT
  Age: 50 Year
  Sex: Female
  Weight: 76 kg

DRUGS (4)
  1. HUMIRA [Suspect]
     Indication: RHEUMATOID ARTHRITIS
     Route: 058
     Dates: start: 20110105
  2. HUMIRA [Suspect]
     Dates: start: 20111029, end: 20111213
  3. METHOTREXATE [Concomitant]
     Indication: RHEUMATOID ARTHRITIS
     Route: 048
     Dates: start: 20111102, end: 20111213
  4. METHOTREXATE [Concomitant]

REACTIONS (1)
  - Pyoderma gangrenosum [Recovering/Resolving]
